FAERS Safety Report 5284836-3 (Version None)
Quarter: 2007Q1

REPORT INFORMATION
  Report Type: 
  Country: None (occurrence: None)
  Receive Date: 20070328
  Receipt Date: 20070320
  Transmission Date: 20070707
  Serious: Yes (Hospitalization)
  Sender: FDA-Public Use
  Company Number: 6031069

PATIENT
  Age: 35 Year
  Sex: Male

DRUGS (1)
  1. DETENSIEL (10 MG, TABLET) BISOPROLOL FUMARATE) [Suspect]
     Indication: HYPERTENSION
     Dosage: ORAL
     Route: 048
     Dates: start: 20050115, end: 20060415

REACTIONS (3)
  - BLOOD CREATINE PHOSPHOKINASE INCREASED [None]
  - MYALGIA [None]
  - VERTIGO [None]
